FAERS Safety Report 13409974 (Version 1)
Quarter: 2017Q2

REPORT INFORMATION
  Report Type: Spontaneous
  Country: US (occurrence: US)
  Receive Date: 20170406
  Receipt Date: 20170406
  Transmission Date: 20170830
  Serious: Yes (Other)
  Sender: FDA-Public Use
  Company Number: US-PFIZER INC-2017143224

PATIENT
  Age: 56 Year
  Sex: Male
  Weight: 57 kg

DRUGS (5)
  1. FENTANYL CITRATE. [Suspect]
     Active Substance: FENTANYL CITRATE
     Indication: ANAESTHESIA
     Dosage: 120 ML, (50 UG/ML, FOLLOWING  20 ML OF FENTANYL IN 30 SECONDS)
     Route: 041
  2. MORPHINE SULFATE. [Concomitant]
     Active Substance: MORPHINE SULFATE
     Indication: PREMEDICATION
     Dosage: 8 MG, UNK
     Route: 030
  3. PROPRANOLOL [Concomitant]
     Active Substance: PROPRANOLOL HYDROCHLORIDE
     Indication: ANGINA PECTORIS
     Dosage: 40 MG, 4X/DAY (EVERY 6 HOURS)
  4. DIAZEPAM. [Concomitant]
     Active Substance: DIAZEPAM
     Indication: PREMEDICATION
     Dosage: 10 MG, UNK
     Route: 048
  5. FENTANYL CITRATE. [Suspect]
     Active Substance: FENTANYL CITRATE
     Dosage: 30 ML, (INJECTION OF FENTANYL (50 UG/ML))
     Route: 040

REACTIONS (1)
  - Seizure [Unknown]
